FAERS Safety Report 5452975-X (Version None)
Quarter: 2007Q3

REPORT INFORMATION
  Report Type: 
  Country: None (occurrence: None)
  Receive Date: 20070914
  Receipt Date: 20070912
  Transmission Date: 20080115
  Serious: Yes (Life-Threatening, Hospitalization)
  Sender: FDA-Public Use
  Company Number: JP-SHR-JP-2006-015255

PATIENT
  Age: 74 Year
  Sex: Male
  Weight: 54.5 kg

DRUGS (5)
  1. FLUDARA [Suspect]
     Indication: CHRONIC LYMPHOCYTIC LEUKAEMIA
     Dosage: 20 MG, 1X/DAY
     Route: 042
     Dates: start: 20050801, end: 20050803
  2. NOVANTRONE [Suspect]
     Indication: CHRONIC LYMPHOCYTIC LEUKAEMIA
     Dosage: 10 MG, 1X/DAY
     Route: 042
     Dates: start: 20050801, end: 20050801
  3. KYTRIL [Concomitant]
     Dosage: 3 MG, 1X/DAY
     Route: 042
     Dates: start: 20050801, end: 20050803
  4. BAKTAR [Concomitant]
     Dosage: .5 G, 1X/DAY
     Route: 048
     Dates: start: 20050713
  5. IMMUNE GLOBULIN INTRAVENOUS (HUMAN) [Concomitant]
     Indication: HYPOGAMMAGLOBULINAEMIA
     Dosage: 5 G, 1-2 X/MONTH
     Route: 041
     Dates: start: 19990101

REACTIONS (2)
  - BONE MARROW FAILURE [None]
  - COLON CANCER [None]
